FAERS Safety Report 10889653 (Version 2)
Quarter: 2015Q1

REPORT INFORMATION
  Report Type: Spontaneous
  Country: US (occurrence: US)
  Receive Date: 20150305
  Receipt Date: 20150305
  Transmission Date: 20150721
  Serious: Yes (Other)
  Sender: FDA-Public Use
  Company Number: US-ROCHE-1513443

PATIENT
  Age: 47 Year
  Sex: Female

DRUGS (3)
  1. ERIVEDGE [Suspect]
     Active Substance: VISMODEGIB
     Route: 065
     Dates: start: 201409
  2. ERIVEDGE [Suspect]
     Active Substance: VISMODEGIB
     Indication: BASAL CELL CARCINOMA
     Route: 065
     Dates: start: 201403, end: 201404
  3. MELATONIN [Concomitant]
     Active Substance: MELATONIN
     Route: 065
     Dates: start: 201410

REACTIONS (6)
  - Gastrointestinal pain [Recovered/Resolved]
  - Hepatic failure [Recovering/Resolving]
  - Sinusitis [Recovered/Resolved]
  - Pain [Recovered/Resolved]
  - Muscle spasms [Not Recovered/Not Resolved]
  - Insomnia [Not Recovered/Not Resolved]

NARRATIVE: CASE EVENT DATE: 201410
